FAERS Safety Report 19860183 (Version 2)
Quarter: 2021Q4

REPORT INFORMATION
  Report Type: Spontaneous
  Country: US (occurrence: US)
  Receive Date: 20210920
  Receipt Date: 20211006
  Transmission Date: 20220303
  Serious: Yes (Other)
  Sender: FDA-Public Use
  Company Number: US-BAYER-2021-212397

PATIENT
  Age: 57 Year
  Sex: Male

DRUGS (2)
  1. KOVALTRY [Suspect]
     Active Substance: ANTIHEMOPHILIC FACTOR, HUMAN RECOMBINANT
     Dosage: 3187 IU, UNK
     Route: 042
  2. KOVALTRY [Suspect]
     Active Substance: ANTIHEMOPHILIC FACTOR, HUMAN RECOMBINANT
     Dosage: UNK; TREATED EARLY THIS AM FOR RIGHT KNEE BLEED
     Dates: start: 20210915

REACTIONS (2)
  - Haemarthrosis [None]
  - Arthritis [None]

NARRATIVE: CASE EVENT DATE: 20210915
